FAERS Safety Report 4733436-X (Version None)
Quarter: 2005Q3

REPORT INFORMATION
  Report Type: 
  Country: None (occurrence: None)
  Receive Date: 20050801
  Receipt Date: 20050720
  Transmission Date: 20060218
  Serious: Yes (Death)
  Sender: FDA-Public Use
  Company Number: HQWYE124702JUN05

PATIENT
  Age: 4 Year
  Sex: Female

DRUGS (4)
  1. ADVIL [Suspect]
     Dosage: ORAL
     Route: 048
  2. DOMPERIDONE            (DOMPERIDONE ) [Suspect]
  3. NIFUROXAZIDE (NIFUROXAZIDE, ) [Suspect]
  4. ACETAMINOPHEN [Suspect]

REACTIONS (2)
  - DIARRHOEA [None]
  - PERITONITIS [None]
